FAERS Safety Report 4705883-3 (Version None)
Quarter: 2005Q2

REPORT INFORMATION
  Report Type: 
  Country: None (occurrence: None)
  Receive Date: 20050629
  Receipt Date: 20050418
  Transmission Date: 20051028
  Serious: Yes (Hospitalization)
  Sender: FDA-Public Use
  Company Number: 05P-163-0297805-00

PATIENT
  Age: 74 Year
  Sex: Female

DRUGS (10)
  1. HUMIRA [Suspect]
     Indication: RHEUMATOID ARTHRITIS
     Dosage: 40 MG, 1 IN 2 WK, SUBCUTANEOUS
     Route: 058
     Dates: start: 20030501, end: 20050315
  2. PREDNISONE TAB [Concomitant]
  3. DARVOCET [Concomitant]
  4. VERAPAMIL HYDROCHLORIDE [Concomitant]
  5. DIGOXIN [Concomitant]
  6. COUMADIN [Concomitant]
  7. DIOVAN [Concomitant]
  8. ATORVASTATIN CALCIUM [Concomitant]
  9. GLIMEPIRIDE [Concomitant]
  10. ALENDRONATE SODIUM [Concomitant]

REACTIONS (1)
  - LOCALISED INFECTION [None]
